FAERS Safety Report 8344417-1 (Version None)
Quarter: 2012Q2

REPORT INFORMATION
  Report Type: 
  Country: None (occurrence: None)
  Receive Date: 20120508
  Receipt Date: 20120427
  Transmission Date: 20120825
  Serious: Yes (Death, Hospitalization)
  Sender: FDA-Public Use
  Company Number: DE-ROCHE-760342

PATIENT
  Sex: Female
  Weight: 70 kg

DRUGS (5)
  1. GRANISETRON [Concomitant]
     Indication: NAUSEA
     Route: 048
  2. LEUCOVORIN CALCIUM [Concomitant]
     Indication: COLON CANCER
     Route: 042
  3. NOVALGIN [Concomitant]
     Indication: PAIN
     Route: 048
  4. AVASTIN [Suspect]
     Indication: COLON CANCER
     Route: 042
  5. FLUOROURACIL [Concomitant]
     Indication: COLON CANCER
     Route: 042

REACTIONS (3)
  - PELVIC PAIN [None]
  - DEHYDRATION [None]
  - DEATH [None]
